FAERS Safety Report 8916647 (Version 1)
Quarter: 2012Q4

REPORT INFORMATION
  Report Type: 
  Country: SE (occurrence: SE)
  Receive Date: 20121120
  Receipt Date: 20121120
  Transmission Date: 20130627
  Serious: Yes (Hospitalization)
  Sender: FDA-Public Use
  Company Number: SE-PFIZER INC-2012284417

PATIENT
  Age: 64 Year
  Sex: Female
  Weight: 89.8 kg

DRUGS (15)
  1. GENOTROPIN [Suspect]
     Indication: GROWTH HORMONE DEFICIENCY
     Dosage: 0.53 mg, 1x/day, 7 injections/week
     Route: 058
     Dates: start: 19990517
  2. CORTISONE ACETATE [Concomitant]
     Indication: ACTH DECREASED
     Dosage: UNK
     Dates: start: 19860101
  3. CYCLABIL [Concomitant]
     Indication: LUTEINISING HORMONE DEFICIENCY
     Dosage: UNK
     Dates: start: 19860101
  4. CYCLABIL [Concomitant]
     Indication: FOLLICLE-STIMULATING HORMONE DEFICIENCY
  5. CYCLABIL [Concomitant]
     Indication: HYPOGONADISM FEMALE
  6. ESTRADIOL [Concomitant]
     Indication: LH DECREASED
     Dosage: UNK
     Dates: start: 19970123
  7. ESTRADIOL [Concomitant]
     Indication: FSH DECREASED
  8. ESTRADIOL [Concomitant]
     Indication: HYPOGONADISM FEMALE
  9. NORETHISTERONE ^DAK^ [Concomitant]
     Indication: LH DECREASED
     Dosage: UNK
     Dates: start: 19970123
  10. NORETHISTERONE ^DAK^ [Concomitant]
     Indication: FSH DECREASED
  11. NORETHISTERONE ^DAK^ [Concomitant]
     Indication: OVARIAN DISORDER
  12. NORETHISTERONE ^DAK^ [Concomitant]
     Indication: HYPOGONADISM
  13. LEVOTHYROXINE [Concomitant]
     Indication: TSH DECREASED
     Dosage: UNK
     Dates: start: 19860101
  14. TIPAROL [Concomitant]
     Indication: PAIN
     Dosage: UNK
     Dates: start: 20090101
  15. DESMOPRESSIN [Concomitant]
     Indication: DIABETES INSIPIDUS
     Dosage: UNK
     Dates: start: 19860101

REACTIONS (2)
  - Nasopharyngitis [Unknown]
  - Foreign body [Unknown]
